FAERS Safety Report 25209483 (Version 1)
Quarter: 2025Q2

REPORT INFORMATION
  Report Type: Spontaneous
  Country: US (occurrence: None)
  Receive Date: 20250417
  Receipt Date: 20250417
  Transmission Date: 20250717
  Serious: Yes (Other)
  Sender: FDA-CTU
  Company Number: None

PATIENT

DRUGS (3)
  1. 7-HYDROXYMITRAGYNINE [Suspect]
     Active Substance: 7-HYDROXYMITRAGYNINE
  2. Opia [Concomitant]
  3. 7Tabz [Concomitant]

REACTIONS (8)
  - Product communication issue [None]
  - Withdrawal syndrome [None]
  - Restlessness [None]
  - Anxiety [None]
  - Pain [None]
  - Fatigue [None]
  - Irritability [None]
  - Cold sweat [None]
